FAERS Safety Report 12431251 (Version 1)
Quarter: 2016Q2

REPORT INFORMATION
  Report Type: Spontaneous
  Country: US (occurrence: US)
  Receive Date: 20160603
  Receipt Date: 20160603
  Transmission Date: 20160815
  Serious: No
  Sender: FDA-Public Use
  Company Number: US-ASTRAZENECA-2016SE32681

PATIENT
  Sex: Male
  Weight: 49.4 kg

DRUGS (7)
  1. PROAIR INHALER [Concomitant]
     Dosage: 90 UG TAKES TOO MANY PUFFS A DAY
  2. CARBAMESATINE [Concomitant]
     Indication: SEIZURE
     Route: 048
  3. SYMBICORT [Suspect]
     Active Substance: BUDESONIDE\FORMOTEROL FUMARATE DIHYDRATE
     Dosage: 160 4.5 UG UNKNOWN UNKNOWN
     Route: 055
     Dates: end: 201509
  4. SIMVASTATIN THE GENERIC [Concomitant]
     Indication: BLOOD CHOLESTEROL ABNORMAL
  5. BABY ASPRIN [Concomitant]
     Active Substance: ASPIRIN
     Indication: CARDIAC DISORDER
     Route: 048
  6. TEGRETOL [Concomitant]
     Active Substance: CARBAMAZEPINE
  7. ALBUTEROL SULFATE. [Concomitant]
     Active Substance: ALBUTEROL SULFATE
     Dosage: TOO MANY PUFFS A DAY

REACTIONS (5)
  - Chromaturia [Unknown]
  - Feeling abnormal [Unknown]
  - Weight decreased [Unknown]
  - Gait disturbance [Unknown]
  - Intentional product misuse [Unknown]
